FAERS Safety Report 7749241-6 (Version None)
Quarter: 2011Q3

REPORT INFORMATION
  Report Type: 
  Country: None (occurrence: None)
  Receive Date: 20110914
  Receipt Date: 20110909
  Transmission Date: 20111222
  Serious: Yes (Other)
  Sender: FDA-Public Use
  Company Number: TR-PFIZER INC-2011211611

PATIENT

DRUGS (1)
  1. VARENICLINE TARTRATE [Suspect]
     Dosage: 0.5 MG, UNK

REACTIONS (4)
  - NAUSEA [None]
  - SWOLLEN TONGUE [None]
  - MENTAL DISORDER [None]
  - PHARYNGEAL OEDEMA [None]
